FAERS Safety Report 21462167 (Version 3)
Quarter: 2024Q1

REPORT INFORMATION
  Report Type: Report from Study
  Country: US (occurrence: US)
  Receive Date: 20221016
  Receipt Date: 20240319
  Transmission Date: 20240410
  Serious: Yes (Hospitalization, Other)
  Sender: FDA-Public Use
  Company Number: US-BoehringerIngelheim-2022-BI-197411

PATIENT
  Age: 68 Year
  Sex: Male

DRUGS (4)
  1. OFEV [Suspect]
     Active Substance: NINTEDANIB
     Indication: Fibrosis
     Dates: start: 2021
  2. OFEV [Suspect]
     Active Substance: NINTEDANIB
  3. ALLOPURINOL [Concomitant]
     Active Substance: ALLOPURINOL
     Indication: Gout
  4. POTASSIUM [Concomitant]
     Active Substance: POTASSIUM
     Indication: Gout

REACTIONS (10)
  - Non-small cell lung cancer [Not Recovered/Not Resolved]
  - Gastrointestinal disorder [Unknown]
  - Loss of consciousness [Unknown]
  - Influenza [Not Recovered/Not Resolved]
  - Gastrointestinal motility disorder [Not Recovered/Not Resolved]
  - Fall [Unknown]
  - Loss of consciousness [Recovered/Resolved]
  - Tooth fracture [Unknown]
  - Limb injury [Unknown]
  - Intentional product use issue [Unknown]

NARRATIVE: CASE EVENT DATE: 20210101
